FAERS Safety Report 4331590-5 (Version None)
Quarter: 2004Q2

REPORT INFORMATION
  Report Type: 
  Country: None (occurrence: None)
  Receive Date: 20040405
  Receipt Date: 20040326
  Transmission Date: 20050107
  Serious: Yes (Hospitalization)
  Sender: FDA-Public Use
  Company Number: US-MERCK-0403USA02459

PATIENT
  Sex: Female

DRUGS (2)
  1. CANCIDAS [Suspect]
     Indication: OESOPHAGEAL CANDIDIASIS
     Route: 042
  2. CANCIDAS [Suspect]
     Route: 042

REACTIONS (1)
  - OESOPHAGEAL CANDIDIASIS [None]
